FAERS Safety Report 22911883 (Version 3)
Quarter: 2023Q4

REPORT INFORMATION
  Report Type: Spontaneous
  Country: US (occurrence: US)
  Receive Date: 20230906
  Receipt Date: 20231201
  Transmission Date: 20240109
  Serious: Yes (Hospitalization, Other)
  Sender: FDA-Public Use
  Company Number: US-PFIZER INC-PV202300150120

PATIENT
  Age: 72 Year
  Sex: Male
  Weight: 108 kg

DRUGS (21)
  1. XELJANZ XR [Suspect]
     Active Substance: TOFACITINIB CITRATE
     Indication: Rheumatoid arthritis
     Dosage: 11 MG, 1X/DAY
     Dates: start: 20180604
  2. ASPIRIN [Concomitant]
     Active Substance: ASPIRIN
     Indication: Carotid artery disease
     Dosage: 1 EVERY MORNING
     Dates: start: 20181029
  3. PLAVIX [Concomitant]
     Active Substance: CLOPIDOGREL BISULFATE
     Indication: Cardiac disorder
     Dosage: 1 EVERY MORNING
     Dates: start: 20170426
  4. VITAMIN D3 [Concomitant]
     Active Substance: CHOLECALCIFEROL
     Dosage: 1 EVERY AM
     Dates: start: 20151008
  5. VITAMIN D3 [Concomitant]
     Active Substance: CHOLECALCIFEROL
     Dosage: 1 EVERY AM
     Dates: start: 202103
  6. METHOTREXATE SODIUM [Concomitant]
     Active Substance: METHOTREXATE SODIUM
     Indication: Rheumatoid arthritis
     Dosage: EVERY MONDAY MORNING-10 TABLETS
     Dates: start: 20130101
  7. PANTOPRAZOLE [Concomitant]
     Active Substance: PANTOPRAZOLE
     Indication: Gastrointestinal disorder
     Dosage: 40 MG, 2X/DAY
     Dates: start: 20210910
  8. FOLIC ACID [Concomitant]
     Active Substance: FOLIC ACID
     Indication: Rheumatoid arthritis
     Dosage: 1 MORNING-1 NIGHT
     Dates: start: 20071106
  9. PLAQUENIL [Concomitant]
     Active Substance: HYDROXYCHLOROQUINE SULFATE
     Indication: Rheumatoid arthritis
     Dosage: 1 MORNING-1 NIGHT
     Dates: start: 20071106
  10. HYDROXYZINE HYDROCHLORIDE [Concomitant]
     Active Substance: HYDROXYZINE HYDROCHLORIDE
     Indication: Pruritus
     Dosage: 1 MORNING-1 NIGHT- 1 LUNCH
     Dates: start: 20230907
  11. HYDROXYZINE HYDROCHLORIDE [Concomitant]
     Active Substance: HYDROXYZINE HYDROCHLORIDE
     Indication: Herpes zoster
  12. LIPITOR [Concomitant]
     Active Substance: ATORVASTATIN CALCIUM
     Indication: Cardiac disorder
     Dosage: 1 EVERY NIGHT
     Dates: start: 20120908, end: 20171011
  13. LIPITOR [Concomitant]
     Active Substance: ATORVASTATIN CALCIUM
     Dosage: 1 EVERY NIGHT
     Dates: start: 20171012, end: 20171211
  14. LIPITOR [Concomitant]
     Active Substance: ATORVASTATIN CALCIUM
     Dosage: 1 EVERY NIGHT
     Dates: start: 20171212
  15. TRESIBA [Concomitant]
     Active Substance: INSULIN DEGLUDEC
     Indication: Type 2 diabetes mellitus
     Dosage: 20-35 UNITS/DAILY/1 INJECTION BEFORE BEDTIME
     Dates: start: 20230601
  16. OZEMPIC [Concomitant]
     Active Substance: SEMAGLUTIDE
     Indication: Type 2 diabetes mellitus
     Dosage: 25 IU, WEEKLY
     Dates: start: 20200519
  17. NITROGLYCERIN [Concomitant]
     Active Substance: NITROGLYCERIN
     Indication: Chest pain
     Dosage: 0.4 MG, AS NEEDED
     Dates: start: 20070131
  18. NITROGLYCERIN [Concomitant]
     Active Substance: NITROGLYCERIN
     Indication: Cardiac disorder
  19. PREDNISONE [Concomitant]
     Active Substance: PREDNISONE
     Indication: Rheumatoid arthritis
     Dosage: 20 MG, AS NEEDED
     Dates: start: 20150401
  20. IBUPROFEN [Concomitant]
     Active Substance: IBUPROFEN
     Indication: Rheumatoid arthritis
     Dosage: 800 MG, AS NEEDED
     Dates: start: 20100804
  21. IBUPROFEN [Concomitant]
     Active Substance: IBUPROFEN
     Indication: Back pain

REACTIONS (1)
  - Pneumonia [Unknown]

NARRATIVE: CASE EVENT DATE: 20230801
